FAERS Safety Report 7685781-6 (Version None)
Quarter: 2011Q3

REPORT INFORMATION
  Report Type: 
  Country: None (occurrence: None)
  Receive Date: 20110815
  Receipt Date: 20110815
  Transmission Date: 20111222
  Serious: No
  Sender: FDA-Public Use
  Company Number: None

PATIENT
  Age: 54 Year
  Sex: Female
  Weight: 70.306 kg

DRUGS (1)
  1. LATISSE [Suspect]
     Indication: ALOPECIA
     Dosage: 1 DROP ACROSS EYE LID LASH LIN
     Dates: start: 20110427, end: 20110805

REACTIONS (2)
  - HAIR GROWTH ABNORMAL [None]
  - MADAROSIS [None]
